FAERS Safety Report 10650364 (Version 2)
Quarter: 2014Q4

REPORT INFORMATION
  Report Type: Report from Study
  Country: AR (occurrence: AR)
  Receive Date: 20141213
  Receipt Date: 20141213
  Transmission Date: 20150529
  Serious: Yes (Death, Hospitalization)
  Sender: FDA-Public Use
  Company Number: AR-ABBVIE-14K-007-1315095-00

PATIENT
  Age: 75 Year
  Sex: Male

DRUGS (1)
  1. HUMIRA [Suspect]
     Active Substance: ADALIMUMAB
     Indication: PSORIASIS
     Route: 065
     Dates: end: 201407

REACTIONS (6)
  - Gastric cancer [Fatal]
  - Pain [Unknown]
  - Hepatic cancer [Fatal]
  - Liver disorder [Unknown]
  - Liver disorder [Fatal]
  - Hepatic pain [Unknown]

NARRATIVE: CASE EVENT DATE: 20141015
